FAERS Safety Report 20301045 (Version 4)
Quarter: 2022Q1

REPORT INFORMATION
  Report Type: Report from Study
  Country: KR (occurrence: KR)
  Receive Date: 20220105
  Receipt Date: 20220208
  Transmission Date: 20220423
  Serious: Yes (Other)
  Sender: FDA-Public Use
  Company Number: KR-NOVARTISPH-NVSC2022KR000904

PATIENT
  Age: 60 Year
  Sex: Female

DRUGS (19)
  1. RYDAPT [Suspect]
     Active Substance: MIDOSTAURIN
     Indication: Acute myeloid leukaemia
     Dosage: 50 MG, BID
     Route: 048
     Dates: start: 20210905, end: 20210912
  2. RYDAPT [Suspect]
     Active Substance: MIDOSTAURIN
     Dosage: 50 MG, BID
     Route: 048
     Dates: start: 20211116, end: 20211121
  3. CYTARABINE [Concomitant]
     Active Substance: CYTARABINE
     Indication: Acute myeloid leukaemia
     Dosage: 310 MG
     Route: 042
     Dates: start: 20210829, end: 20210904
  4. CYTARABINE [Concomitant]
     Active Substance: CYTARABINE
     Dosage: 310 MG
     Route: 042
     Dates: start: 20211109, end: 20211110
  5. CYTARABINE [Concomitant]
     Active Substance: CYTARABINE
     Dosage: 320 MG
     Route: 042
     Dates: start: 20211111, end: 20211113
  6. DAUNORUBICIN HYDROCHLORIDE [Concomitant]
     Active Substance: DAUNORUBICIN HYDROCHLORIDE
     Indication: Acute myeloid leukaemia
     Dosage: 92 MG
     Route: 042
     Dates: start: 20210829, end: 20210831
  7. DAUNORUBICIN HYDROCHLORIDE [Concomitant]
     Active Substance: DAUNORUBICIN HYDROCHLORIDE
     Dosage: 70 MG
     Route: 042
     Dates: start: 20211109, end: 20211110
  8. AMBISOME [Concomitant]
     Active Substance: AMPHOTERICIN B
     Indication: Prophylaxis
     Dosage: 163.2 MG
     Route: 042
     Dates: start: 20210905, end: 20210910
  9. MEROPENEM [Concomitant]
     Active Substance: MEROPENEM
     Indication: Prophylaxis
     Dosage: 3000 MG
     Route: 042
     Dates: start: 20210905, end: 20210906
  10. VANCOCIN CP [Concomitant]
     Indication: Prophylaxis
     Dosage: 1.632 MG
     Route: 042
     Dates: start: 20210905, end: 20210906
  11. MEGACE F [Concomitant]
     Indication: Prophylaxis
     Dosage: 5 ML
     Route: 048
     Dates: start: 20210811, end: 20210907
  12. LOPAINE [Concomitant]
     Indication: Diarrhoea
     Dosage: 12 MG
     Route: 048
     Dates: start: 20210903, end: 20210906
  13. LOPAINE [Concomitant]
     Dosage: 16 MG
     Route: 048
     Dates: start: 20210907, end: 20210908
  14. ALVERIX [Concomitant]
     Indication: Diarrhoea
     Dosage: 2 DOSAGE FORM
     Route: 048
     Dates: start: 20210904, end: 20210908
  15. ALLOPURINOL [Concomitant]
     Active Substance: ALLOPURINOL
     Indication: Prophylaxis
     Dosage: 300 MG
     Route: 048
     Dates: start: 20210825, end: 20210904
  16. ESROBAN [Concomitant]
     Indication: Nose deformity
     Dosage: 10 G
     Route: 065
     Dates: start: 20210827, end: 20210928
  17. NOXAFIL [Concomitant]
     Active Substance: POSACONAZOLE
     Indication: Prophylaxis
     Dosage: 300 MG
     Route: 048
     Dates: start: 20210829, end: 20210904
  18. MAXIPIME [Concomitant]
     Active Substance: CEFEPIME HYDROCHLORIDE
     Indication: Prophylaxis
     Dosage: 6 G
     Route: 042
     Dates: start: 20210903, end: 20210904
  19. MAXIPIME [Concomitant]
     Active Substance: CEFEPIME HYDROCHLORIDE
     Dosage: 6 G
     Route: 042
     Dates: start: 20210907, end: 20210920

REACTIONS (1)
  - Enterococcal infection [Recovered/Resolved]

NARRATIVE: CASE EVENT DATE: 20210914
